FAERS Safety Report 24237627 (Version 3)
Quarter: 2024Q4

REPORT INFORMATION
  Report Type: Spontaneous
  Country: AU (occurrence: AU)
  Receive Date: 20240822
  Receipt Date: 20241223
  Transmission Date: 20250115
  Serious: Yes (Life-Threatening, Other)
  Sender: CSL BEHRING
  Company Number: AU-BEH-2024177334

PATIENT
  Age: 71 Year
  Sex: Female
  Weight: 79 kg

DRUGS (12)
  1. ALBUREX [Suspect]
     Active Substance: ALBUMIN HUMAN
     Indication: Procedural hypotension
     Route: 065
  2. ALBUREX [Suspect]
     Active Substance: ALBUMIN HUMAN
     Dosage: 200 ML/HR
     Route: 042
     Dates: start: 20240424, end: 20240424
  3. PROPOFOL [Concomitant]
     Active Substance: PROPOFOL
     Indication: General anaesthesia
     Dosage: UNK
     Route: 042
     Dates: start: 20240424, end: 20240424
  4. REMIFENTANIL [Concomitant]
     Active Substance: REMIFENTANIL
     Indication: General anaesthesia
     Dosage: UNK
     Route: 042
     Dates: start: 20240424, end: 20240424
  5. ROCURONIUM [Concomitant]
     Active Substance: ROCURONIUM BROMIDE
     Indication: General anaesthesia
     Dosage: UNK
     Route: 042
     Dates: start: 20240424, end: 20240424
  6. CEFAZOLIN [Concomitant]
     Active Substance: CEFAZOLIN
     Indication: General anaesthesia
     Dosage: UNK
     Route: 042
     Dates: start: 20240424, end: 20240424
  7. CEFAZOLIN [Concomitant]
     Active Substance: CEFAZOLIN
     Indication: Prophylaxis
  8. DEXAMETHASONE [Concomitant]
     Active Substance: DEXAMETHASONE
     Indication: General anaesthesia
     Dosage: UNK
     Route: 042
     Dates: start: 20240424, end: 20240424
  9. PARECOXIB [Concomitant]
     Active Substance: PARECOXIB
     Indication: General anaesthesia
     Dosage: UNK
     Route: 042
     Dates: start: 20240424, end: 20240424
  10. OXYCODONE [Concomitant]
     Active Substance: OXYCODONE
     Indication: General anaesthesia
     Dosage: UNK
     Route: 042
     Dates: start: 20240424, end: 20240424
  11. RABEPRAZOLE [Concomitant]
     Active Substance: RABEPRAZOLE
     Dosage: 200 MG, OD
  12. RHINOCORT [Concomitant]
     Active Substance: BUDESONIDE
     Indication: Seasonal allergy
     Dosage: UNK, PRN

REACTIONS (14)
  - Anaphylactic reaction [Recovered/Resolved]
  - Bronchospasm [Unknown]
  - Haemodynamic instability [Unknown]
  - Rash [Unknown]
  - Tryptase increased [Unknown]
  - Skin test positive [Unknown]
  - Hypotension [Recovered/Resolved]
  - Erythema [Recovered/Resolved]
  - Urticaria [Recovered/Resolved]
  - Generalised oedema [Recovered/Resolved]
  - Flushing [Recovered/Resolved]
  - Rash [Recovered/Resolved]
  - Swelling face [Recovered/Resolved]
  - Wheezing [Recovered/Resolved]

NARRATIVE: CASE EVENT DATE: 20240424
